FAERS Safety Report 8261924 (Version 5)
Quarter: 2012Q4

REPORT INFORMATION
  Report Type: 
  Country: US (occurrence: US)
  Receive Date: 20111123
  Receipt Date: 20121024
  Transmission Date: 20130627
  Serious: Yes (Hospitalization, Other)
  Sender: FDA-Public Use
  Company Number: US-009507513-1111USA02910

PATIENT

DRUGS (6)
  1. FOSAMAX [Suspect]
     Indication: OSTEOPOROSIS
     Dosage: 10 mg, qd
     Route: 048
     Dates: start: 20000810, end: 200011
  2. FOSAMAX [Suspect]
     Dosage: 70 mg, qw
     Route: 048
     Dates: start: 200310, end: 200804
  3. ALENDRONATE SODIUM [Suspect]
     Indication: OSTEOPOROSIS
     Dosage: 70 mg, qw
     Route: 048
     Dates: start: 200806, end: 20101203
  4. CALCIUM (UNSPECIFIED) [Concomitant]
     Indication: PRODUCT USED FOR UNKNOWN INDICATION
     Dosage: 1600 mg, qd
     Dates: start: 2003
  5. VITAMINS (UNSPECIFIED) [Concomitant]
     Dosage: UNK
     Dates: start: 2003
  6. VITAMIN D (UNSPECIFIED) [Concomitant]

REACTIONS (45)
  - Cutaneous lupus erythematosus [Unknown]
  - Femur fracture [Recovered/Resolved]
  - Upper limb fracture [Unknown]
  - Dental prosthesis user [Unknown]
  - Hypertension [Unknown]
  - Adverse event [Unknown]
  - Hyperlipidaemia [Unknown]
  - Scan myocardial perfusion abnormal [Unknown]
  - Scoliosis [Unknown]
  - Palpitations [Unknown]
  - Arthritis [Unknown]
  - Nasal congestion [Unknown]
  - Hot flush [Unknown]
  - Fatigue [Unknown]
  - Epicondylitis [Unknown]
  - Arthropathy [Unknown]
  - Cough [Unknown]
  - Diverticulum [Unknown]
  - Colon adenoma [Unknown]
  - Breast mass [Unknown]
  - Benign breast lump removal [Unknown]
  - Large intestine polyp [Unknown]
  - Polypectomy [Unknown]
  - Anaemia [Unknown]
  - Dry mouth [Unknown]
  - Sjogren^s syndrome [Unknown]
  - Blood iron decreased [Unknown]
  - Muscular weakness [Unknown]
  - Dysuria [Unknown]
  - Drug intolerance [Unknown]
  - Large intestine polyp [Unknown]
  - Polypectomy [Unknown]
  - Vasomotor rhinitis [Unknown]
  - Lymphadenopathy [Unknown]
  - Diverticulum intestinal [Unknown]
  - Migraine [Unknown]
  - Gastrooesophageal reflux disease [Unknown]
  - Muscle spasms [Unknown]
  - Vertigo [Unknown]
  - Tendonitis [Unknown]
  - Trigger finger [Unknown]
  - Fall [Unknown]
  - Closed fracture manipulation [Unknown]
  - Bursitis [Unknown]
  - Arthritis [Unknown]
